FAERS Safety Report 19768966 (Version 1)
Quarter: 2021Q3

REPORT INFORMATION
  Report Type: Spontaneous
  Country: ES (occurrence: ES)
  Receive Date: 20210831
  Receipt Date: 20210831
  Transmission Date: 20211014
  Serious: Yes (Other)
  Sender: FDA-Public Use
  Company Number: NVSC2021ES191648

PATIENT
  Age: 54 Year
  Sex: Female
  Weight: 55 kg

DRUGS (1)
  1. METHOTREXATE. [Suspect]
     Active Substance: METHOTREXATE
     Indication: IMMUNOSUPPRESSION
     Dosage: EL METROTEXATE LO SUSPENDI 15 DIAS ANTES DE LAS DOSIS DE LAS VACUNAS, EL RESTO DE OSEGUI LAS INDICAC
     Route: 065
     Dates: start: 2020, end: 202106

REACTIONS (3)
  - Vaccination site lymphadenopathy [Recovering/Resolving]
  - Erythema nodosum [Recovering/Resolving]
  - Fatigue [Recovering/Resolving]

NARRATIVE: CASE EVENT DATE: 20210622
